FAERS Safety Report 5450709-6 (Version None)
Quarter: 2007Q3

REPORT INFORMATION
  Report Type: 
  Country: None (occurrence: None)
  Receive Date: 20070910
  Receipt Date: 20070807
  Transmission Date: 20080115
  Serious: Yes (Life-Threatening, Other)
  Sender: FDA-Public Use
  Company Number: 2007US001864

PATIENT
  Age: 3 Year
  Sex: Female

DRUGS (3)
  1. PROGRAF [Suspect]
     Indication: LIVER TRANSPLANT
     Dates: start: 20040101
  2. IMURAN [Suspect]
     Indication: LIVER TRANSPLANT
  3. BENADRYL [Concomitant]

REACTIONS (2)
  - FOOD ALLERGY [None]
  - STEVENS-JOHNSON SYNDROME [None]
